FAERS Safety Report 21257636 (Version 2)
Quarter: 2022Q4

REPORT INFORMATION
  Report Type: Spontaneous
  Country: CA (occurrence: CA)
  Receive Date: 20220826
  Receipt Date: 20221103
  Transmission Date: 20230113
  Serious: Yes (Death, Hospitalization, Other)
  Sender: FDA-Public Use
  Company Number: CA-INCYTE CORPORATION-2022IN008147

PATIENT

DRUGS (1)
  1. TAFASITAMAB [Suspect]
     Active Substance: TAFASITAMAB
     Indication: Diffuse large B-cell lymphoma refractory
     Dosage: UNK
     Route: 042

REACTIONS (6)
  - Respiratory failure [Fatal]
  - Hypophagia [Unknown]
  - General physical health deterioration [Unknown]
  - Failure to thrive [Unknown]
  - Pneumonia [Unknown]
  - Fatigue [Unknown]
